FAERS Safety Report 5635001-9 (Version None)
Quarter: 2008Q1

REPORT INFORMATION
  Report Type: 
  Country: None (occurrence: None)
  Receive Date: 20080222
  Receipt Date: 20080219
  Transmission Date: 20080703
  Serious: Yes (Life-Threatening, Other)
  Sender: FDA-Public Use
  Company Number: PHBS2008BR02188

PATIENT
  Age: 38 Year
  Sex: Female

DRUGS (2)
  1. ALCOHOL [Suspect]
  2. TRILEPTAL [Suspect]
     Dosage: 2 BOTTLES, ONCE/SINGLE

REACTIONS (7)
  - COMA [None]
  - COMPLETED SUICIDE [None]
  - HYPOAESTHESIA [None]
  - INTENTIONAL OVERDOSE [None]
  - JOINT INJURY [None]
  - MONOPLEGIA [None]
  - SCAR [None]
